FAERS Safety Report 4871683-7 (Version None)
Quarter: 2005Q4

REPORT INFORMATION
  Report Type: 
  Country: None (occurrence: None)
  Receive Date: 20051230
  Receipt Date: 20051215
  Transmission Date: 20060501
  Serious: Yes (Other)
  Sender: FDA-Public Use
  Company Number: JP200511003456

PATIENT
  Age: 24 Year
  Sex: Female
  Weight: 47 kg

DRUGS (3)
  1. ZYPREXA [Suspect]
     Indication: SCHIZOPHRENIA
     Dosage: 10 + 20 MG, DAILY (1/D), ORAL
     Route: 048
     Dates: start: 20050924, end: 20050930
  2. ZYPREXA [Suspect]
     Indication: SCHIZOPHRENIA
     Dosage: 10 + 20 MG, DAILY (1/D), ORAL
     Route: 048
     Dates: start: 20051001, end: 20051116
  3. LUVOX [Concomitant]

REACTIONS (11)
  - COMMUNICATION DISORDER [None]
  - CONFUSIONAL STATE [None]
  - DEPRESSED LEVEL OF CONSCIOUSNESS [None]
  - DISORIENTATION [None]
  - EXCITABILITY [None]
  - MUSCLE DISORDER [None]
  - POLYDIPSIA [None]
  - PURPURA [None]
  - RESTLESSNESS [None]
  - RHABDOMYOLYSIS [None]
  - VOMITING [None]
